FAERS Safety Report 13574590 (Version 1)
Quarter: 2017Q2

REPORT INFORMATION
  Report Type: Spontaneous
  Country: US (occurrence: US)
  Receive Date: 20170523
  Receipt Date: 20170523
  Transmission Date: 20170830
  Serious: Yes (Other)
  Sender: FDA-Public Use
  Company Number: US-SA-2017SA035331

PATIENT
  Sex: Female

DRUGS (2)
  1. ELOXATIN [Suspect]
     Active Substance: OXALIPLATIN
     Indication: CHEMOTHERAPY
     Route: 042
  2. XALKORI [Suspect]
     Active Substance: CRIZOTINIB
     Indication: CHEMOTHERAPY
     Route: 048
     Dates: start: 20170117

REACTIONS (5)
  - Gastric cancer stage IV [Unknown]
  - Lymphadenopathy mediastinal [Unknown]
  - Metastases to lung [Unknown]
  - Nausea [Unknown]
  - Vomiting [Unknown]
